FAERS Safety Report 5050711-2 (Version None)
Quarter: 2006Q3

REPORT INFORMATION
  Report Type: 
  Country: None (occurrence: None)
  Receive Date: 20060713
  Receipt Date: 20060327
  Transmission Date: 20061208
  Serious: Yes (Hospitalization)
  Sender: FDA-Public Use
  Company Number: GB-BRISTOL-MYERS SQUIBB COMPANY-13326921

PATIENT
  Age: 77 Year
  Sex: Female
  Weight: 45 kg

DRUGS (6)
  1. SINEMET [Suspect]
     Indication: PARKINSON'S DISEASE
     Dates: start: 20040301
  2. FERROUS SULFATE TAB [Interacting]
     Indication: BLOOD IRON DECREASED
  3. ASPIRIN [Concomitant]
     Route: 048
  4. CITALOPRAM [Concomitant]
  5. FLUDROCORTISONE [Concomitant]
  6. FLUROSAMIDE [Concomitant]
     Dates: end: 20060301

REACTIONS (11)
  - BLOOD IRON DECREASED [None]
  - CONDITION AGGRAVATED [None]
  - DEHYDRATION [None]
  - DRUG INTERACTION [None]
  - ESCHERICHIA INFECTION [None]
  - GENERAL PHYSICAL HEALTH DETERIORATION [None]
  - MOUTH ULCERATION [None]
  - ORAL INTAKE REDUCED [None]
  - PARKINSON'S DISEASE [None]
  - PARKINSONISM [None]
  - URINARY TRACT INFECTION [None]
